FAERS Safety Report 22245524 (Version 1)
Quarter: 2023Q2

REPORT INFORMATION
  Report Type: Other
  Country: TW (occurrence: None)
  Receive Date: 20230424
  Receipt Date: 20230424
  Transmission Date: 20230721
  Serious: Yes (Other)
  Sender: FDA-Public Use
  Company Number: TW-ROCHE-3261353

PATIENT
  Age: 63 Year
  Sex: Female
  Weight: 54 kg

DRUGS (20)
  1. PERJETA [Suspect]
     Active Substance: PERTUZUMAB
     Indication: Breast cancer
     Dosage: 420MG/VIAL
     Route: 041
     Dates: start: 20220114
  2. HERCEPTIN [Suspect]
     Active Substance: TRASTUZUMAB
     Indication: Breast cancer
     Dosage: 600 MG/5ML/VIAL
     Route: 058
  3. DOCETAXEL [Suspect]
     Active Substance: DOCETAXEL
     Indication: Breast cancer
     Route: 041
     Dates: start: 20220114
  4. CARBOPLATIN [Suspect]
     Active Substance: CARBOPLATIN
     Indication: Breast cancer
     Route: 041
     Dates: start: 20220114
  5. HYDROXOCOBALAMIN [Concomitant]
     Active Substance: HYDROXOCOBALAMIN
     Dosage: 1MG/AMP
  6. ESOMEPRAZOLE [Concomitant]
     Active Substance: ESOMEPRAZOLE
     Dosage: 3 BEFORE CHEMO
  7. DEXAMETHASONE [Concomitant]
     Active Substance: DEXAMETHASONE
     Dosage: 4MG/ML/AMP
  8. DIPHENHYDRAMINE [Concomitant]
     Active Substance: DIPHENHYDRAMINE
     Dosage: 30MG/ML/AMP
  9. SETRON (TAIWAN) [Concomitant]
  10. METOCLOPRAMIDE [Concomitant]
     Active Substance: METOCLOPRAMIDE
  11. EMEND [Concomitant]
     Active Substance: APREPITANT
  12. FUROSEMIDE [Concomitant]
     Active Substance: FUROSEMIDE
  13. TAITA NO.5 [Concomitant]
  14. MECOMIN [Concomitant]
  15. NOVAMIN (TAIWAN) [Concomitant]
  16. BUTYLSCOPOLAMINE BROMIDE [Concomitant]
     Active Substance: BUTYLSCOPOLAMINE BROMIDE
  17. UNDIARRHEA [Concomitant]
  18. MIYARISAN [Concomitant]
  19. ZYPREXA ZYDIS [Concomitant]
     Active Substance: OLANZAPINE
  20. LIMESON [Concomitant]

REACTIONS (3)
  - Anaemia [Recovered/Resolved]
  - Agranulocytosis [Not Recovered/Not Resolved]
  - Nausea [Recovered/Resolved]

NARRATIVE: CASE EVENT DATE: 20220209
